FAERS Safety Report 13032320 (Version 1)
Quarter: 2016Q4

REPORT INFORMATION
  Report Type: Report from Study
  Country: None (occurrence: US)
  Receive Date: 20161215
  Receipt Date: 20161215
  Transmission Date: 20170207
  Serious: Yes (Hospitalization)
  Sender: FDA-Public Use
  Company Number: US-ABBVIE-16K-163-1805160-00

PATIENT
  Sex: Female

DRUGS (1)
  1. HUMIRA [Suspect]
     Active Substance: ADALIMUMAB
     Indication: CROHN^S DISEASE
     Route: 058
     Dates: start: 20160902, end: 20161125

REACTIONS (9)
  - Constipation [Unknown]
  - Pancreatic cyst [Unknown]
  - Splenectomy [Unknown]
  - Insomnia [Unknown]
  - Anxiety [Unknown]
  - Abdominal pain upper [Unknown]
  - Depressed mood [Unknown]
  - Diarrhoea [Unknown]
  - Nausea [Unknown]

NARRATIVE: CASE EVENT DATE: 2016
